FAERS Safety Report 12274465 (Version 1)
Quarter: 2016Q2

REPORT INFORMATION
  Report Type: Spontaneous
  Country: US (occurrence: US)
  Receive Date: 20160415
  Receipt Date: 20160415
  Transmission Date: 20160815
  Serious: No
  Sender: FDA-Public Use
  Company Number: US-ALLERGAN-1515357US

PATIENT
  Age: 86 Year
  Sex: Female
  Weight: 68.94 kg

DRUGS (2)
  1. ALBUTEROL. [Concomitant]
     Active Substance: ALBUTEROL
     Indication: ASTHMA
     Dosage: UNK UNK, BID
  2. LUMIGAN [Suspect]
     Active Substance: BIMATOPROST
     Indication: SEASONAL ALLERGY
     Dosage: 1 GTT, UNK
     Route: 047
     Dates: start: 20150708

REACTIONS (3)
  - Eye pruritus [Not Recovered/Not Resolved]
  - Foreign body sensation in eyes [Not Recovered/Not Resolved]
  - Ocular hyperaemia [Not Recovered/Not Resolved]

NARRATIVE: CASE EVENT DATE: 201507
